FAERS Safety Report 8067767-5 (Version None)
Quarter: 2012Q1

REPORT INFORMATION
  Report Type: 
  Country: None (occurrence: None)
  Receive Date: 20120124
  Receipt Date: 20120112
  Transmission Date: 20120608
  Serious: Yes (Hospitalization)
  Sender: FDA-Public Use
  Company Number: IE-MEDIMMUNE-MEDI-0014580

PATIENT
  Sex: Female
  Weight: 3.2 kg

DRUGS (3)
  1. ERGOCALCIFEROL [Concomitant]
  2. SYNAGIS [Suspect]
     Route: 030
     Dates: start: 20111221, end: 20111221
  3. FERROUS SULFATE TAB [Concomitant]

REACTIONS (1)
  - PNEUMONIA [None]
